FAERS Safety Report 4789689-5 (Version None)
Quarter: 2005Q4

REPORT INFORMATION
  Report Type: 
  Country: None (occurrence: None)
  Receive Date: 20051006
  Receipt Date: 20050803
  Transmission Date: 20060501
  Serious: Yes (Life-Threatening)
  Sender: FDA-Public Use
  Company Number: JP-BRISTOL-MYERS SQUIBB COMPANY-13064605

PATIENT
  Age: 15 Year
  Sex: Male

DRUGS (2)
  1. PARAPLATIN [Suspect]
     Indication: BRAIN NEOPLASM
     Route: 042
  2. LASTET [Suspect]
     Indication: BRAIN NEOPLASM
     Route: 042

REACTIONS (2)
  - HEPATIC CIRRHOSIS [None]
  - HEPATIC STEATOSIS [None]
